FAERS Safety Report 6155906-2 (Version None)
Quarter: 2009Q2

REPORT INFORMATION
  Report Type: 
  Country: None (occurrence: None)
  Receive Date: 20090413
  Receipt Date: 20090123
  Transmission Date: 20091009
  Serious: Yes (Death)
  Sender: FDA-Public Use
  Company Number: PERC20090013

PATIENT
  Sex: Male

DRUGS (2)
  1. PERCOCET [Suspect]
     Indication: PAIN
  2. VICODIN ES [Concomitant]

REACTIONS (2)
  - DRUG TOXICITY [None]
  - OVERDOSE [None]
